FAERS Safety Report 19625157 (Version 1)
Quarter: 2021Q3

REPORT INFORMATION
  Report Type: Spontaneous
  Country: US (occurrence: US)
  Receive Date: 20210729
  Receipt Date: 20210729
  Transmission Date: 20211014
  Serious: Yes (Other)
  Sender: FDA-Public Use
  Company Number: US-NOVOPROD-832332

PATIENT
  Sex: Female

DRUGS (1)
  1. NOVOLIN 70/30 [Suspect]
     Active Substance: INSULIN HUMAN
     Indication: PRODUCT USED FOR UNKNOWN INDICATION
     Dosage: INJECTS 40 UNITS IN THE MORNING AND 15 UNITS AT NIGHT.
     Route: 058
     Dates: start: 2019

REACTIONS (2)
  - Hip arthroplasty [Unknown]
  - Weight increased [Unknown]

NARRATIVE: CASE EVENT DATE: 2019
